FAERS Safety Report 18203907 (Version 1)
Quarter: 2020Q3

REPORT INFORMATION
  Report Type: Report from Study
  Country: AT (occurrence: AT)
  Receive Date: 20200827
  Receipt Date: 20200827
  Transmission Date: 20201104
  Serious: Yes (Other)
  Sender: FDA-Public Use
  Company Number: AT-GLAXOSMITHKLINE-AT2020GSK170937

PATIENT
  Age: 62 Year
  Sex: Male
  Weight: 77.8 kg

DRUGS (2)
  1. BELANTAMAB MAFODOTIN. [Suspect]
     Active Substance: BELANTAMAB MAFODOTIN
     Indication: PLASMA CELL MYELOMA
     Dosage: 190 MG, Q3 WEEK
     Route: 042
     Dates: start: 20200709, end: 20200820
  2. HYALURONIC ACID [Concomitant]
     Active Substance: HYALURONIC ACID
     Indication: PROPHYLAXIS
     Dosage: 10
     Dates: start: 20200709

REACTIONS (2)
  - Punctate keratitis [Not Recovered/Not Resolved]
  - Visual acuity reduced [Not Recovered/Not Resolved]

NARRATIVE: CASE EVENT DATE: 20200820
